FAERS Safety Report 8587402-7 (Version None)
Quarter: 2012Q3

REPORT INFORMATION
  Report Type: 
  Country: None (occurrence: None)
  Receive Date: 20120810
  Receipt Date: 20120319
  Transmission Date: 20120928
  Serious: No
  Sender: FDA-Public Use
  Company Number: US-ASTRAZENECA-2011SE78887

PATIENT
  Age: 89 Year
  Sex: Female
  Weight: 59.9 kg

DRUGS (4)
  1. CALCIUM [Concomitant]
     Indication: BONE DISORDER
  2. ARIMIDEX [Suspect]
     Route: 048
     Dates: start: 20101001
  3. VITAMIN D [Concomitant]
     Indication: BONE DISORDER
  4. NAPROXEN [Concomitant]
     Route: 048

REACTIONS (7)
  - VISUAL IMPAIRMENT [None]
  - RENAL FAILURE CHRONIC [None]
  - MACULAR DEGENERATION [None]
  - DEPRESSION [None]
  - ARTHRALGIA [None]
  - OSTEOARTHRITIS [None]
  - HYPERKERATOSIS [None]
